FAERS Safety Report 5802761-3 (Version None)
Quarter: 2008Q3

REPORT INFORMATION
  Report Type: 
  Country: None (occurrence: None)
  Receive Date: 20080708
  Receipt Date: 20080625
  Transmission Date: 20090109
  Serious: Yes (Other)
  Sender: FDA-Public Use
  Company Number: CA-ELI_LILLY_AND_COMPANY-CA200805004603

PATIENT
  Age: 47 Year
  Sex: Male

DRUGS (9)
  1. FORTEO [Suspect]
     Indication: HYPOPARATHYROIDISM
     Dosage: 20 UG, DAILY (1/D)
     Route: 058
     Dates: start: 20070201
  2. PREDNISONE TAB [Concomitant]
  3. SYNTHROID [Concomitant]
  4. FLORINEF [Concomitant]
  5. KETOCONAZOL [Concomitant]
  6. FOLIC ACID [Concomitant]
  7. PLAQUENIL [Concomitant]
  8. CALCIUM [Concomitant]
     Dates: end: 20070201
  9. ROCALTROL [Concomitant]
     Dates: end: 20070201

REACTIONS (4)
  - BONE DISORDER [None]
  - CALCIPHYLAXIS [None]
  - OVERDOSE [None]
  - PAIN IN EXTREMITY [None]
